FAERS Safety Report 9257318 (Version 1)
Quarter: 2013Q2

REPORT INFORMATION
  Report Type: Spontaneous
  Country: US (occurrence: None)
  Receive Date: 20130423
  Receipt Date: 20130423
  Transmission Date: 20140414
  Serious: Yes (Other)
  Sender: FDA-Public Use
  Company Number: AUR-APL-2013-03185

PATIENT
  Age: 50 Year
  Sex: Female

DRUGS (2)
  1. SERTRALINE (SERTRALINE) (SERTRALINE) [Suspect]
     Indication: POST-TRAUMATIC STRESS DISORDER
  2. CITALOPRAM (CITALOPRAM) [Suspect]
     Indication: DEPRESSION

REACTIONS (19)
  - Night sweats [None]
  - Somnolence [None]
  - Constipation [None]
  - Weight increased [None]
  - Loss of libido [None]
  - Frustration [None]
  - Treatment noncompliance [None]
  - Suicidal ideation [None]
  - Fatigue [None]
  - Asthenia [None]
  - Feeling of despair [None]
  - Suicide attempt [None]
  - Intentional self-injury [None]
  - Fear [None]
  - Homicidal ideation [None]
  - Self esteem decreased [None]
  - Negativism [None]
  - Flat affect [None]
  - Therapeutic response decreased [None]
